FAERS Safety Report 9684179 (Version 1)
Quarter: 2013Q4

REPORT INFORMATION
  Report Type: Spontaneous
  Country: DE (occurrence: DE)
  Receive Date: 20131112
  Receipt Date: 20131112
  Transmission Date: 20140711
  Serious: Yes (Life-Threatening, Hospitalization, Congenital Anomaly, Other)
  Sender: FDA-Public Use
  Company Number: DE-UCBSA-102672

PATIENT
  Age: 0 None
  Sex: Male
  Weight: 3.36 kg

DRUGS (4)
  1. KEPPRA [Suspect]
     Indication: EPILEPSY
     Route: 064
     Dates: start: 20080409, end: 20081211
  2. ERGENYL CHRONO [Suspect]
     Indication: EPILEPSY
     Route: 064
     Dates: start: 20080409, end: 20081211
  3. FOLIC ACID [Concomitant]
     Indication: PROPHYLAXIS OF NEURAL TUBE DEFECT
     Route: 064
     Dates: start: 2008, end: 20081211
  4. CYTOTEC [Concomitant]
     Indication: LABOUR INDUCTION
     Route: 064
     Dates: start: 200812, end: 20081211

REACTIONS (6)
  - Cryptorchism [Unknown]
  - Congenital central nervous system anomaly [Unknown]
  - Penile curvature [Not Recovered/Not Resolved]
  - Persistent foetal circulation [Recovered/Resolved]
  - Congenital foot malformation [Unknown]
  - Foetal exposure during pregnancy [Recovered/Resolved]
